FAERS Safety Report 6342006-1 (Version None)
Quarter: 2009Q3

REPORT INFORMATION
  Report Type: 
  Country: None (occurrence: None)
  Receive Date: 20090904
  Receipt Date: 20090901
  Transmission Date: 20100115
  Serious: Yes (Other)
  Sender: FDA-Public Use
  Company Number: NO-MERCK-0909NOR00002

PATIENT
  Age: 87 Year
  Sex: Female

DRUGS (4)
  1. COZAAR [Suspect]
     Route: 065
  2. FUROSEMIDE [Concomitant]
     Route: 065
  3. IBUPROFEN [Concomitant]
     Route: 065
  4. NAPROXEN [Concomitant]
     Route: 065

REACTIONS (2)
  - FLUID RETENTION [None]
  - RENAL FAILURE ACUTE [None]
